FAERS Safety Report 9715698 (Version 2)
Quarter: 2013Q4

REPORT INFORMATION
  Report Type: Spontaneous
  Country: FR (occurrence: FR)
  Receive Date: 20131127
  Receipt Date: 20131127
  Transmission Date: 20140711
  Serious: Yes (Life-Threatening, Hospitalization, Disabling, Other)
  Sender: FDA-Public Use
  Company Number: FR-AMGEN-FRASP2013072460

PATIENT
  Age: 53 Year
  Sex: Male

DRUGS (2)
  1. ENBREL [Suspect]
     Indication: RHEUMATOID ARTHRITIS
     Dosage: 50 MG, ONCE WEEKLY
     Route: 065
     Dates: start: 201303, end: 20130522
  2. CORTANCYL [Suspect]
     Indication: RHEUMATOID ARTHRITIS
     Dosage: 7.5 MG, DAILY
     Route: 065
     Dates: start: 201206

REACTIONS (6)
  - Splenic rupture [Recovered/Resolved with Sequelae]
  - Splenic haemorrhage [Recovered/Resolved with Sequelae]
  - Post procedural complication [Recovered/Resolved with Sequelae]
  - Arthritis bacterial [Recovered/Resolved with Sequelae]
  - Streptococcal abscess [Recovered/Resolved with Sequelae]
  - Escherichia infection [Recovered/Resolved with Sequelae]
